FAERS Safety Report 10130698 (Version 1)
Quarter: 2014Q2

REPORT INFORMATION
  Report Type: Spontaneous
  Country: US (occurrence: US)
  Receive Date: 20140428
  Receipt Date: 20140428
  Transmission Date: 20141212
  Serious: No
  Sender: FDA-Public Use
  Company Number: US-PFIZER INC-2014116744

PATIENT
  Sex: Female

DRUGS (3)
  1. NEURONTIN [Suspect]
     Indication: NEUROPATHY PERIPHERAL
     Dosage: 2700 MG (9 CAPSULES OF 300 MG), DAILY
     Route: 048
  2. COZAAR [Concomitant]
     Indication: BLOOD PRESSURE ABNORMAL
     Dosage: 25 MG, UNK
  3. LASIX [Concomitant]
     Indication: JOINT SWELLING
     Dosage: 20 MG, DAILY

REACTIONS (2)
  - Pain in extremity [Unknown]
  - Drug effect incomplete [Unknown]
